FAERS Safety Report 11933993 (Version 2)
Quarter: 2016Q1

REPORT INFORMATION
  Report Type: Report from Study
  Country: AR (occurrence: AR)
  Receive Date: 20160121
  Receipt Date: 20160202
  Transmission Date: 20160526
  Serious: Yes (Hospitalization, Other)
  Sender: FDA-Public Use
  Company Number: PHHY2016AR004929

PATIENT
  Age: 72 Year
  Sex: Male

DRUGS (2)
  1. DIOVAN D [Suspect]
     Active Substance: HYDROCHLOROTHIAZIDE\VALSARTAN
     Indication: HYPERTENSION
     Dosage: 1 DF, QD (160 MG/25 MG)
     Route: 065
  2. ATORVASTATIN W/EZETIMIBE [Concomitant]
     Indication: BLOOD CHOLESTEROL INCREASED
     Dosage: 1 DF, (ATORVASTATIN 20 MG + EZETIMIBE 10 MG)
     Route: 065

REACTIONS (14)
  - Nosocomial infection [Unknown]
  - Osteoarthritis [Unknown]
  - Cough [Unknown]
  - Wound infection bacterial [Unknown]
  - Pneumonia [Recovering/Resolving]
  - Dyspnoea [Unknown]
  - Fatigue [Unknown]
  - Pyrexia [Unknown]
  - Chronic obstructive pulmonary disease [Unknown]
  - Secretion discharge [Unknown]
  - Wound infection [Unknown]
  - Skin infection [Recovering/Resolving]
  - Chondropathy [Unknown]
  - Malaise [Unknown]

NARRATIVE: CASE EVENT DATE: 20151004
